FAERS Safety Report 14944409 (Version 1)
Quarter: 2018Q2

REPORT INFORMATION
  Report Type: Spontaneous
  Country: GB (occurrence: GB)
  Receive Date: 20180528
  Receipt Date: 20180528
  Transmission Date: 20180711
  Serious: Yes (Hospitalization)
  Sender: FDA-Public Use
  Company Number: GB-TEVA-2018-GB-898707

PATIENT
  Age: 84 Year
  Sex: Female
  Weight: 72 kg

DRUGS (11)
  1. WARFARIN [Suspect]
     Active Substance: WARFARIN
     Indication: ATRIAL FIBRILLATION
     Dosage: 4MG/3MG
     Route: 048
     Dates: start: 20171207, end: 20180219
  2. RAMIPRIL. [Concomitant]
     Active Substance: RAMIPRIL
  3. PARACETAMOL [Concomitant]
     Active Substance: ACETAMINOPHEN
  4. INVITA-D3 [Concomitant]
     Dosage: 25000 IU (INTERNATIONAL UNIT) DAILY;
  5. SIMVASTATIN. [Concomitant]
     Active Substance: SIMVASTATIN
  6. FUROSEMIDE. [Concomitant]
     Active Substance: FUROSEMIDE
  7. LETROZOLE. [Concomitant]
     Active Substance: LETROZOLE
  8. TOLTERODINE [Concomitant]
     Active Substance: TOLTERODINE
  9. ALENDRONIC ACID [Concomitant]
     Active Substance: ALENDRONIC ACID
  10. DIGOXIN. [Concomitant]
     Active Substance: DIGOXIN
  11. SPIRONOLACTONE. [Concomitant]
     Active Substance: SPIRONOLACTONE

REACTIONS (2)
  - Haemoglobin decreased [Recovered/Resolved]
  - Rectal haemorrhage [Recovered/Resolved]

NARRATIVE: CASE EVENT DATE: 20180219
